FAERS Safety Report 9404597 (Version 1)
Quarter: 2013Q3

REPORT INFORMATION
  Report Type: Spontaneous
  Country: US (occurrence: None)
  Receive Date: 20130716
  Receipt Date: 20130716
  Transmission Date: 20140515
  Serious: Yes (Hospitalization)
  Sender: FDA-Public Use
  Company Number: None

PATIENT
  Age: 70 Year
  Sex: Male
  Weight: 49 kg

DRUGS (2)
  1. TRAZODONE [Suspect]
     Indication: INSOMNIA
     Route: 048
     Dates: start: 20130523, end: 20130530
  2. TRAZODONE [Suspect]
     Indication: PAIN
     Route: 048
     Dates: start: 20130523, end: 20130530

REACTIONS (3)
  - Confusional state [None]
  - Hallucination [None]
  - Constipation [None]
